FAERS Safety Report 4566855-5 (Version None)
Quarter: 2005Q1

REPORT INFORMATION
  Report Type: 
  Country: None (occurrence: None)
  Receive Date: 20050201
  Receipt Date: 20020418
  Transmission Date: 20050727
  Serious: Yes (Other)
  Sender: FDA-Public Use
  Company Number: US-BRISTOL-MYERS SQUIBB COMPANY-11836319

PATIENT
  Age: 44 Year
  Sex: Female

DRUGS (15)
  1. STADOL [Suspect]
     Route: 045
     Dates: start: 19930930, end: 19980111
  2. CARISOPRODOL [Concomitant]
  3. THORAZINE [Concomitant]
  4. NEURONTIN [Concomitant]
  5. RESTORIL [Concomitant]
  6. KLONOPIN [Concomitant]
  7. LORCET-HD [Concomitant]
  8. FIORICET [Concomitant]
  9. DIPHENHYDRAMINE HCL [Concomitant]
  10. LORAZEPAM [Concomitant]
  11. PHENERGAN [Concomitant]
  12. NORTRIPTYLINE HCL [Concomitant]
  13. TRIMETHOBENZAMIDE [Concomitant]
  14. NORVASC [Concomitant]
  15. VALIUM [Concomitant]

REACTIONS (1)
  - DEPENDENCE [None]
